FAERS Safety Report 8818956 (Version 3)
Quarter: 2012Q4

REPORT INFORMATION
  Report Type: 
  Country: GB (occurrence: GB)
  Receive Date: 20121001
  Receipt Date: 20121112
  Transmission Date: 20130627
  Serious: Yes (Other)
  Sender: FDA-Public Use
  Company Number: PHHY2012GB083960

PATIENT
  Age: 75 Year
  Sex: Male

DRUGS (5)
  1. RHUMALGAN [Suspect]
     Indication: ARTHRITIS
     Dosage: 75 mg, UNK
     Route: 048
  2. RHUMALGAN [Suspect]
     Dosage: 1 DF, daily
  3. TRAMADOL [Concomitant]
  4. MORPHINE [Concomitant]
     Route: 062
  5. PARACETAMOL [Concomitant]

REACTIONS (6)
  - Road traffic accident [Unknown]
  - Back crushing [Unknown]
  - Arthralgia [Unknown]
  - Musculoskeletal pain [Unknown]
  - Pain [Unknown]
  - Drug withdrawal syndrome [Unknown]
